FAERS Safety Report 9630181 (Version 1)
Quarter: 2013Q4

REPORT INFORMATION
  Report Type: Report from Study
  Country: US (occurrence: US)
  Receive Date: 20131017
  Receipt Date: 20131017
  Transmission Date: 20140711
  Serious: Yes (Death)
  Sender: FDA-Public Use
  Company Number: PHEH2013US021635

PATIENT
  Age: 70 Year
  Sex: Male

DRUGS (1)
  1. EXFORGE HCT [Suspect]
     Dosage: 5MG (AS REPORTED)

REACTIONS (1)
  - Death [Fatal]
